FAERS Safety Report 12328624 (Version 1)
Quarter: 2016Q2

REPORT INFORMATION
  Report Type: Spontaneous
  Country: US (occurrence: US)
  Receive Date: 20160503
  Receipt Date: 20160503
  Transmission Date: 20160815
  Serious: No
  Sender: FDA-Public Use
  Company Number: US-BEH-2015049661

PATIENT
  Sex: Female
  Weight: 79.4 kg

DRUGS (43)
  1. PROVIGIL [Concomitant]
     Active Substance: MODAFINIL
  2. ALPHA LIPOIC ACID [Concomitant]
     Active Substance: .ALPHA.-LIPOIC ACID
  3. HIZENTRA [Suspect]
     Active Substance: HUMAN IMMUNOGLOBULIN G
     Indication: HYPOGAMMAGLOBULINAEMIA
     Route: 058
     Dates: start: 20150226
  4. ACETAMINOPHEN. [Concomitant]
     Active Substance: ACETAMINOPHEN
  5. LMX [Concomitant]
     Active Substance: LIDOCAINE
  6. LASIX [Concomitant]
     Active Substance: FUROSEMIDE
  7. TESTOSTERONE. [Concomitant]
     Active Substance: TESTOSTERONE
  8. GARLIC. [Concomitant]
     Active Substance: GARLIC
  9. COQ10 [Concomitant]
     Active Substance: UBIDECARENONE
  10. PRILOSEC [Concomitant]
     Active Substance: OMEPRAZOLE MAGNESIUM
  11. L-LYSINE [Concomitant]
     Active Substance: LYSINE
  12. MELATONIN [Concomitant]
     Active Substance: MELATONIN
  13. GUAIFENESIN. [Concomitant]
     Active Substance: GUAIFENESIN
  14. HIZENTRA [Suspect]
     Active Substance: HUMAN IMMUNOGLOBULIN G
     Indication: IMMUNODEFICIENCY COMMON VARIABLE
     Route: 058
     Dates: start: 20150226
  15. PREDNISONE. [Concomitant]
     Active Substance: PREDNISONE
  16. METHYLPREDNISOLONE. [Concomitant]
     Active Substance: METHYLPREDNISOLONE
  17. PULMICORT TURBUHALER [Concomitant]
     Active Substance: BUDESONIDE
  18. MULTIVITAMINS [Concomitant]
     Active Substance: VITAMINS
  19. OCUVITE [Concomitant]
     Active Substance: VITAMINS
  20. ASPIRIN. [Concomitant]
     Active Substance: ASPIRIN
  21. MALIC ACID [Concomitant]
     Active Substance: MALIC ACID
  22. CYCLOBENZAPRINE [Concomitant]
     Active Substance: CYCLOBENZAPRINE
  23. DHEA [Concomitant]
     Active Substance: PRASTERONE
  24. FLEXERIL [Concomitant]
     Active Substance: CYCLOBENZAPRINE HYDROCHLORIDE
  25. VITAMIN D3 [Concomitant]
     Active Substance: CHOLECALCIFEROL
  26. ULTRAM [Concomitant]
     Active Substance: TRAMADOL HYDROCHLORIDE
  27. ASTEPRO [Concomitant]
     Active Substance: AZELASTINE HYDROCHLORIDE
  28. PILOCARPINE. [Concomitant]
     Active Substance: PILOCARPINE
  29. FOLIC ACID. [Concomitant]
     Active Substance: FOLIC ACID
  30. VALERIAN ROOT [Concomitant]
     Active Substance: VALERIAN
  31. XOPENEX [Concomitant]
     Active Substance: LEVALBUTEROL HYDROCHLORIDE
  32. ALEVE [Concomitant]
     Active Substance: NAPROXEN SODIUM
  33. RESTASIS [Concomitant]
     Active Substance: CYCLOSPORINE
  34. DIPHENHYDRAMINE. [Concomitant]
     Active Substance: DIPHENHYDRAMINE
  35. VITAMIN B12 [Concomitant]
     Active Substance: CYANOCOBALAMIN
  36. ESTER-C [Concomitant]
     Active Substance: CALCIUM\VITAMINS
  37. CALCIUM [Concomitant]
     Active Substance: CALCIUM
  38. HIZENTRA [Suspect]
     Active Substance: HUMAN IMMUNOGLOBULIN G
     Indication: HYPOGAMMAGLOBULINAEMIA
     Route: 058
     Dates: start: 20150226
  39. NEURONTIN [Concomitant]
     Active Substance: GABAPENTIN
  40. EPIPEN [Concomitant]
     Active Substance: EPINEPHRINE
  41. LEVOTHYROXINE. [Concomitant]
     Active Substance: LEVOTHYROXINE
  42. CRANBERRY. [Concomitant]
     Active Substance: CRANBERRY
  43. CHROMIUM [Concomitant]
     Active Substance: CHROMIC CHLORIDE\CHROMIUM

REACTIONS (1)
  - Nausea [Unknown]
